FAERS Safety Report 4478049-2 (Version None)
Quarter: 2004Q3

REPORT INFORMATION
  Report Type: 
  Country: None (occurrence: None)
  Receive Date: 20040923
  Receipt Date: 20040802
  Transmission Date: 20050211
  Serious: No
  Sender: FDA-Public Use
  Company Number: USA040874330

PATIENT
  Age: 52 Year
  Sex: Male

DRUGS (2)
  1. FORTEO [Suspect]
     Indication: OSTEOPOROSIS
     Dates: start: 20040730
  2. VITAMIN [Concomitant]

REACTIONS (6)
  - INJECTION SITE DISCOLOURATION [None]
  - INJECTION SITE PAIN [None]
  - INJECTION SITE WARMTH [None]
  - PARAESTHESIA [None]
  - RASH MACULAR [None]
  - TONGUE DRY [None]
